FAERS Safety Report 6816634-0 (Version None)
Quarter: 2010Q3

REPORT INFORMATION
  Report Type: 
  Country: None (occurrence: None)
  Receive Date: 20100706
  Receipt Date: 20100628
  Transmission Date: 20110219
  Serious: Yes (Other)
  Sender: FDA-Public Use
  Company Number: US-RB-012521-10

PATIENT
  Age: 69 Year
  Sex: Female

DRUGS (2)
  1. MUCINEX DM [Suspect]
     Dosage: PRODUCT TAKEN FOR 4 OR 5 DAYS
     Route: 048
     Dates: start: 20100601
  2. ANTIDEPRESSANT [Concomitant]

REACTIONS (2)
  - BLOOD PRESSURE INCREASED [None]
  - HEADACHE [None]
